FAERS Safety Report 7793345-9 (Version None)
Quarter: 2011Q4

REPORT INFORMATION
  Report Type: 
  Country: None (occurrence: None)
  Receive Date: 20111003
  Receipt Date: 20110630
  Transmission Date: 20120403
  Serious: No
  Sender: FDA-Public Use
  Company Number: US-BAYER-2011-056974

PATIENT
  Sex: Female

DRUGS (1)
  1. AVELOX [Suspect]
     Dosage: 400 MG, UNK
     Route: 048
     Dates: start: 20110601, end: 20110601

REACTIONS (2)
  - RASH [None]
  - URTICARIA [None]
